FAERS Safety Report 15211964 (Version 1)
Quarter: 2018Q3

REPORT INFORMATION
  Report Type: Spontaneous
  Country: US (occurrence: US)
  Receive Date: 20180729
  Receipt Date: 20180729
  Transmission Date: 20181010
  Serious: No
  Sender: FDA-Public Use
  Company Number: US-CELGENEUS-USA-20180707473

PATIENT
  Sex: Male

DRUGS (3)
  1. REVLIMID [Suspect]
     Active Substance: LENALIDOMIDE
     Indication: OFF LABEL USE
  2. REVLIMID [Suspect]
     Active Substance: LENALIDOMIDE
     Indication: NON-HODGKIN^S LYMPHOMA STAGE III
     Dosage: 25 MILLIGRAM
     Route: 048
     Dates: start: 20180623
  3. REVLIMID [Suspect]
     Active Substance: LENALIDOMIDE
     Indication: SWELLING

REACTIONS (5)
  - Memory impairment [Unknown]
  - Tinnitus [Unknown]
  - Musculoskeletal chest pain [Recovering/Resolving]
  - Confusional state [Unknown]
  - Blood glucose increased [Unknown]

NARRATIVE: CASE EVENT DATE: 2018
